FAERS Safety Report 17455104 (Version 1)
Quarter: 2020Q1

REPORT INFORMATION
  Report Type: Spontaneous
  Country: US (occurrence: US)
  Receive Date: 20200225
  Receipt Date: 20200225
  Transmission Date: 20200409
  Serious: Yes (Other)
  Sender: FDA-Public Use
  Company Number: US-GLAXOSMITHKLINE-US2020GSK032854

PATIENT
  Sex: Female
  Weight: 49.43 kg

DRUGS (1)
  1. VARUBI [Suspect]
     Active Substance: ROLAPITANT
     Indication: OVARIAN CANCER
     Dosage: 2 DF, Z, (180 MG EVERY 21 DAYS)
     Route: 048

REACTIONS (2)
  - Small intestinal obstruction [Unknown]
  - Small intestine operation [Unknown]
